FAERS Safety Report 8798625 (Version 2)
Quarter: 2012Q4

REPORT INFORMATION
  Report Type: Spontaneous
  Country: US (occurrence: None)
  Receive Date: 20120914
  Receipt Date: 20120920
  Transmission Date: 20130627
  Serious: Yes (Hospitalization, Other)
  Sender: FDA-Public Use
  Company Number: DSA_59533_2012

PATIENT
  Age: 56 Year
  Sex: Male

DRUGS (2)
  1. XENAZINE 25 MG (NOT SPECIFIED) [Suspect]
     Indication: HUNTINGTON^S DISEASE
     Route: 048
     Dates: start: 20120611, end: 20120709
  2. XENAZINE 25 MG (NOT SPECIFIED) [Suspect]
     Indication: HUNTINGTON^S DISEASE
     Route: 048
     Dates: start: 20120710

REACTIONS (7)
  - Nephrolithiasis [None]
  - Urinary tract infection [None]
  - Pulmonary thrombosis [None]
  - Pneumothorax [None]
  - Pneumonia [None]
  - Drooling [None]
  - Activities of daily living impaired [None]
